FAERS Safety Report 6047723-9 (Version None)
Quarter: 2009Q1

REPORT INFORMATION
  Report Type: 
  Country: None (occurrence: None)
  Receive Date: 20090123
  Receipt Date: 20090116
  Transmission Date: 20090719
  Serious: Yes (Death)
  Sender: FDA-Public Use
  Company Number: JP-JNJFOC-20081205057

PATIENT
  Sex: Female
  Weight: 53 kg

DRUGS (9)
  1. RISPERDAL [Suspect]
     Indication: SCHIZOPHRENIA
     Route: 048
  2. DEPAKENE [Suspect]
     Indication: DRUG USE FOR UNKNOWN INDICATION
     Route: 048
  3. RISPERDAL [Suspect]
     Route: 048
  4. DEPAKENE [Concomitant]
     Indication: AFFECTIVE DISORDER
     Route: 048
  5. DEPAKENE [Concomitant]
     Indication: SCHIZOPHRENIA
     Route: 048
  6. RISUMIC [Concomitant]
     Indication: ORTHOSTATIC HYPOTENSION
     Route: 048
  7. ROHYPNOL [Concomitant]
     Indication: INSOMNIA
     Route: 048
  8. AMOBAN [Concomitant]
     Indication: INSOMNIA
     Route: 048
  9. PURSENNID [Concomitant]
     Indication: CONSTIPATION
     Route: 048

REACTIONS (3)
  - CARDIO-RESPIRATORY ARREST [None]
  - LOSS OF CONSCIOUSNESS [None]
  - RESPIRATORY FAILURE [None]
